FAERS Safety Report 7934087-6 (Version None)
Quarter: 2011Q4

REPORT INFORMATION
  Report Type: 
  Country: None (occurrence: None)
  Receive Date: 20111118
  Receipt Date: 20111107
  Transmission Date: 20120403
  Serious: Yes (Other)
  Sender: FDA-Public Use
  Company Number: 1000019241

PATIENT
  Age: 55 Year
  Sex: Female
  Weight: 45 kg

DRUGS (7)
  1. SPIRIVA [Concomitant]
  2. ROFLUMILAST (ROFLUMILAST) (TABLETS) [Suspect]
     Indication: CHRONIC OBSTRUCTIVE PULMONARY DISEASE
     Dosage: 1 DOSAGE FORM (1 DOSAGE FORMS, 1 IN 2 D)
     Dates: start: 20110218, end: 20110228
  3. DOXYHESAL (DOXYCYCLINE) (200  MILLIGRAM, TABLETS) (DOXYCYCLINE) [Concomitant]
  4. SALBUHEXAL (SALBUTAMOL) (10 MILLIGRAM, TABLETS) (SALBUTAMOL) [Concomitant]
  5. THROMPHYLLIN [Concomitant]
  6. SANASTHMAX (BECLOMETASONE DIPROPIONATE) (BECLOMETASONE DIPROPIONATE) [Concomitant]
  7. APSOMOL (SALBUTAMOL) (SALBUTAMOL) [Concomitant]

REACTIONS (2)
  - HERPES ZOSTER [None]
  - CONDITION AGGRAVATED [None]
